FAERS Safety Report 7510613-6 (Version None)
Quarter: 2011Q2

REPORT INFORMATION
  Report Type: 
  Country: None (occurrence: None)
  Receive Date: 20110530
  Receipt Date: 20110523
  Transmission Date: 20111010
  Serious: No
  Sender: FDA-Public Use
  Company Number: US-BIOGENIDEC-2011BI019514

PATIENT
  Sex: Female

DRUGS (4)
  1. AVONEX [Suspect]
     Indication: MULTIPLE SCLEROSIS
     Route: 030
     Dates: start: 19990401
  2. AVONEX [Suspect]
     Route: 030
     Dates: start: 20030101
  3. LANTUS [Concomitant]
     Indication: TYPE 1 DIABETES MELLITUS
  4. APIDRA [Concomitant]
     Indication: TYPE 1 DIABETES MELLITUS

REACTIONS (3)
  - OSTEOPOROSIS [None]
  - INFLUENZA LIKE ILLNESS [None]
  - INSOMNIA [None]
